FAERS Safety Report 8097797-9 (Version None)
Quarter: 2012Q1

REPORT INFORMATION
  Report Type: 
  Country: None (occurrence: None)
  Receive Date: 20120128
  Receipt Date: 20110804
  Transmission Date: 20120608
  Serious: No
  Sender: FDA-Public Use
  Company Number: US-ABBOTT-11P-163-0844274-00

PATIENT
  Sex: Female
  Weight: 49.486 kg

DRUGS (6)
  1. HUMIRA [Suspect]
     Route: 058
  2. VITAMIN D [Concomitant]
     Indication: VITAMIN SUPPLEMENTATION
  3. VITAMIN B-12 [Concomitant]
     Indication: VITAMIN SUPPLEMENTATION
     Route: 030
  4. IMURAN [Concomitant]
     Indication: CROHN'S DISEASE
  5. HUMIRA [Suspect]
     Indication: CROHN'S DISEASE
     Route: 058
     Dates: start: 20110730, end: 20110730
  6. PAXIL [Concomitant]
     Indication: DEPRESSION

REACTIONS (2)
  - ARTHRALGIA [None]
  - NAUSEA [None]
